FAERS Safety Report 15378032 (Version 1)
Quarter: 2018Q3

REPORT INFORMATION
  Report Type: Spontaneous
  Country: ES (occurrence: ES)
  Receive Date: 20180913
  Receipt Date: 20180913
  Transmission Date: 20181010
  Serious: Yes (Other)
  Sender: FDA-Public Use
  Company Number: ES-PFIZER INC-2018365861

PATIENT
  Age: 53 Year
  Sex: Male
  Weight: 73.5 kg

DRUGS (1)
  1. CHAMPIX [Suspect]
     Active Substance: VARENICLINE TARTRATE
     Dosage: UNK
     Route: 048
     Dates: start: 201808

REACTIONS (4)
  - Hyperglycaemia [Not Recovered/Not Resolved]
  - Glycosuria [Not Recovered/Not Resolved]
  - Ketonuria [Not Recovered/Not Resolved]
  - Diabetes mellitus [Not Recovered/Not Resolved]

NARRATIVE: CASE EVENT DATE: 20180814
